FAERS Safety Report 13678745 (Version 5)
Quarter: 2017Q3

REPORT INFORMATION
  Report Type: Spontaneous
  Country: US (occurrence: US)
  Receive Date: 20170622
  Receipt Date: 20170719
  Transmission Date: 20171127
  Serious: No
  Sender: FDA-Public Use
  Company Number: US-ACTELION-A-US2017-155604

PATIENT
  Age: 81 Year
  Sex: Female
  Weight: 49.89 kg

DRUGS (7)
  1. VENTAVIS [Suspect]
     Active Substance: ILOPROST
     Indication: PULMONARY ARTERIAL HYPERTENSION
     Dosage: UNK UNK, BID
     Route: 055
  2. OPSUMIT [Suspect]
     Active Substance: MACITENTAN
     Indication: PULMONARY ARTERIAL HYPERTENSION
     Dosage: 10 MG, QD
     Route: 048
  3. UPTRAVI [Suspect]
     Active Substance: SELEXIPAG
     Dosage: 200 MCG, BID
     Route: 048
  4. UPTRAVI [Suspect]
     Active Substance: SELEXIPAG
     Indication: PULMONARY ARTERIAL HYPERTENSION
     Dosage: 400 MCG, BID
     Route: 048
  5. UPTRAVI [Suspect]
     Active Substance: SELEXIPAG
     Dosage: 200 MCG, QD
     Route: 048
     Dates: end: 201706
  6. ADCIRCA [Concomitant]
     Active Substance: TADALAFIL
  7. XARELTO [Concomitant]
     Active Substance: RIVAROXABAN

REACTIONS (17)
  - Dyspnoea [Unknown]
  - Feeling abnormal [Unknown]
  - Fatigue [Unknown]
  - Flushing [Unknown]
  - Micturition urgency [Unknown]
  - Drug intolerance [Unknown]
  - Tremor [Unknown]
  - Condition aggravated [Unknown]
  - Anxiety [Unknown]
  - Nasopharyngitis [Unknown]
  - Dysuria [Unknown]
  - Panic attack [Unknown]
  - Nausea [Unknown]
  - Abdominal pain upper [Unknown]
  - Constipation [Unknown]
  - Headache [Unknown]
  - Cough [Unknown]

NARRATIVE: CASE EVENT DATE: 201706
